FAERS Safety Report 11981659 (Version 2)
Quarter: 2016Q3

REPORT INFORMATION
  Report Type: Report from Study
  Country: RU (occurrence: RU)
  Receive Date: 20160131
  Receipt Date: 20160826
  Transmission Date: 20161109
  Serious: Yes (Other)
  Sender: FDA-Public Use
  Company Number: RU-BRISTOL-MYERS SQUIBB COMPANY-17172552

PATIENT
  Age: 31 Year
  Sex: Female
  Weight: 68.2 kg

DRUGS (1)
  1. ENTECAVIR. [Suspect]
     Active Substance: ENTECAVIR
     Indication: CHRONIC HEPATITIS B
     Dosage: 0.5 MG, QD
     Route: 048
     Dates: start: 20100209, end: 20120915

REACTIONS (6)
  - Anaemia [Unknown]
  - Caesarean section [Unknown]
  - Live birth [Unknown]
  - Pregnancy on contraceptive [Unknown]
  - Placental insufficiency [Unknown]
  - Premature rupture of membranes [Unknown]

NARRATIVE: CASE EVENT DATE: 20130517
